FAERS Safety Report 4695324-7 (Version None)
Quarter: 2005Q2

REPORT INFORMATION
  Report Type: 
  Country: None (occurrence: None)
  Receive Date: 20050127
  Receipt Date: 20050127
  Transmission Date: 20051028
  Serious: Yes (Other)
  Sender: FDA-Public Use
  Company Number: None

PATIENT
  Age: 32 Year
  Sex: Female
  Weight: 160 kg

DRUGS (1)
  1. MS CONTIN [Suspect]
     Indication: PAIN MANAGEMENT
     Dosage: 30MG 3 PO QID
     Route: 048

REACTIONS (2)
  - MALABSORPTION [None]
  - THERAPEUTIC RESPONSE UNEXPECTED WITH DRUG SUBSTITUTION [None]
